FAERS Safety Report 24827684 (Version 1)
Quarter: 2025Q1

REPORT INFORMATION
  Report Type: Spontaneous
  Country: CH (occurrence: CH)
  Receive Date: 20250109
  Receipt Date: 20250109
  Transmission Date: 20250409
  Serious: Yes (Other)
  Sender: JAZZ
  Company Number: CH-JAZZ PHARMACEUTICALS-2024-CH-017478

PATIENT
  Age: 68 Year
  Sex: Male

DRUGS (2)
  1. ZEPZELCA [Suspect]
     Active Substance: LURBINECTEDIN
     Indication: Product used for unknown indication
     Dosage: 3.2 MILLIGRAM/SQ. METER, D1Q3W
     Dates: start: 202312
  2. ZEPZELCA [Suspect]
     Active Substance: LURBINECTEDIN
     Dosage: 2.6 MILLIGRAM/SQ. METER, D1Q3W
     Dates: start: 202312

REACTIONS (2)
  - Neutropenia [Unknown]
  - Asthenia [Unknown]
